FAERS Safety Report 16298489 (Version 1)
Quarter: 2019Q2

REPORT INFORMATION
  Report Type: Spontaneous
  Country: US (occurrence: US)
  Receive Date: 20190510
  Receipt Date: 20190510
  Transmission Date: 20190711
  Serious: Yes (Hospitalization, Other)
  Sender: FDA-Public Use
  Company Number: US-PFIZER INC-2018070090

PATIENT
  Age: 80 Year
  Sex: Male

DRUGS (4)
  1. LISINOPRIL. [Concomitant]
     Active Substance: LISINOPRIL
     Dosage: 5 MG, BID
     Route: 065
  2. FLOMAX [Concomitant]
     Active Substance: TAMSULOSIN HYDROCHLORIDE
     Dosage: 2 TAB, QWK
     Route: 065
  3. ELIQUIS [Suspect]
     Active Substance: APIXABAN
     Indication: CEREBROVASCULAR ACCIDENT PROPHYLAXIS
     Dosage: 5 MG, BID
     Route: 048
     Dates: start: 20190430
  4. MORPHINE SULFATE. [Suspect]
     Active Substance: MORPHINE SULFATE
     Dosage: UNK
     Route: 065

REACTIONS (12)
  - Cough [Unknown]
  - Hernia [Unknown]
  - Contusion [Unknown]
  - Transient ischaemic attack [Unknown]
  - Nasopharyngitis [Unknown]
  - Product packaging issue [Unknown]
  - Arthropathy [Unknown]
  - Eye disorder [Unknown]
  - Spinal disorder [Unknown]
  - Respiratory tract congestion [Unknown]
  - Rotator cuff syndrome [Unknown]
  - Urinary tract disorder [Unknown]
